FAERS Safety Report 8584665-9 (Version None)
Quarter: 2012Q3

REPORT INFORMATION
  Report Type: 
  Country: None (occurrence: None)
  Receive Date: 20120810
  Receipt Date: 20120731
  Transmission Date: 20120928
  Serious: Yes (Other)
  Sender: FDA-Public Use
  Company Number: BR-SANOFI-AVENTIS-2012SA054955

PATIENT
  Age: 69 Year
  Sex: Female
  Weight: 55 kg

DRUGS (11)
  1. GALVUS [Concomitant]
     Dates: start: 20100101
  2. CLIKSTAR [Suspect]
     Indication: DEVICE THERAPY
     Dates: start: 20020101
  3. BETAHISTINE HYDROCHLORIDE [Concomitant]
     Indication: LABYRINTHITIS
     Dates: start: 20120101
  4. ASPIRIN [Concomitant]
     Indication: ANTIPLATELET THERAPY
     Dates: start: 20020101
  5. LANTUS [Suspect]
     Indication: TYPE 2 DIABETES MELLITUS
     Route: 058
     Dates: start: 20020101
  6. AUTOPEN 24 [Concomitant]
     Indication: DEVICE THERAPY
  7. AMLODIPINE/ATENOLOL [Concomitant]
     Dates: start: 20100101
  8. ROSUVASTATIN [Concomitant]
  9. METFORMIN HYDROCHLORIDE [Concomitant]
     Indication: TYPE 2 DIABETES MELLITUS
     Dates: start: 20020101
  10. COZAAR [Concomitant]
     Indication: BLOOD PRESSURE
     Dates: start: 20120101
  11. PEPRAZOL [Concomitant]
     Indication: GASTRITIS
     Dates: start: 20120101

REACTIONS (4)
  - CATARACT OPERATION [None]
  - ANGINA PECTORIS [None]
  - VISUAL IMPAIRMENT [None]
  - HYPERTENSION [None]
